FAERS Safety Report 13763007 (Version 1)
Quarter: 2017Q3

REPORT INFORMATION
  Report Type: Spontaneous
  Country: None (occurrence: US)
  Receive Date: 20170718
  Receipt Date: 20170718
  Transmission Date: 20171127
  Serious: Yes (Hospitalization)
  Sender: FDA-Public Use
  Company Number: None

PATIENT
  Age: 53 Year
  Sex: Female
  Weight: 119.4 kg

DRUGS (2)
  1. BENLYSTA [Suspect]
     Active Substance: BELIMUMAB
     Indication: SYSTEMIC LUPUS ERYTHEMATOSUS
     Dosage: 1175 MG IVPB 60MIN IV
     Route: 042
     Dates: start: 20170505
  2. BENLYSTA [Suspect]
     Active Substance: BELIMUMAB
     Indication: RHEUMATOID ARTHRITIS
     Dosage: 1175 MG IVPB 60MIN IV
     Route: 042
     Dates: start: 20170505

REACTIONS (3)
  - Dyspnoea [None]
  - Pharyngeal oedema [None]
  - Urticaria [None]

NARRATIVE: CASE EVENT DATE: 20170505
